FAERS Safety Report 15009100 (Version 1)
Quarter: 2018Q2

REPORT INFORMATION
  Report Type: Spontaneous
  Country: FR (occurrence: FR)
  Receive Date: 20180614
  Receipt Date: 20180614
  Transmission Date: 20180711
  Serious: Yes (Other)
  Sender: FDA-Public Use
  Company Number: FR-MERCK KGAA-2049382

PATIENT
  Age: 59 Year
  Sex: Female

DRUGS (2)
  1. NOVOTHYROX [Suspect]
     Active Substance: LEVOTHYROXINE SODIUM
     Dates: start: 2017
  2. NOVOTHYROX [Suspect]
     Active Substance: LEVOTHYROXINE SODIUM
     Indication: HYPOTHYROIDISM
     Dates: start: 201704

REACTIONS (32)
  - Feeling abnormal [None]
  - Decreased interest [None]
  - Head discomfort [None]
  - Fatigue [None]
  - Stress [None]
  - Temperature intolerance [None]
  - Blood thyroid stimulating hormone increased [None]
  - Impaired work ability [None]
  - Hyperthyroidism [None]
  - Syncope [None]
  - Depression [None]
  - Arthralgia [None]
  - Mood swings [None]
  - Hypersensitivity [None]
  - Disturbance in attention [None]
  - Dysphonia [None]
  - Dizziness [None]
  - Anxiety [None]
  - Bradyphrenia [None]
  - Weight increased [None]
  - Headache [None]
  - Dysphagia [None]
  - Loss of personal independence in daily activities [None]
  - Blood pressure decreased [None]
  - Hypothyroidism [None]
  - Vertigo [None]
  - Asthenia [None]
  - Irritability [None]
  - Depressed mood [None]
  - Insomnia [None]
  - Muscle spasms [None]
  - Personal relationship issue [None]

NARRATIVE: CASE EVENT DATE: 2017
